FAERS Safety Report 7216059-2 (Version None)
Quarter: 2011Q1

REPORT INFORMATION
  Report Type: 
  Country: None (occurrence: None)
  Receive Date: 20110105
  Receipt Date: 20110105
  Transmission Date: 20110831
  Serious: Yes (Other)
  Sender: FDA-Public Use
  Company Number: None

PATIENT
  Age: 79 Year
  Sex: Male
  Weight: 87.9978 kg

DRUGS (11)
  1. THERAPEUTIC MULTIVITAMIN-MINERALS -THERAGRAN-M- [Concomitant]
  2. MAGNESIUM OXIDE -MAG-OX- [Concomitant]
  3. VALIUM [Concomitant]
  4. NEXIUM [Concomitant]
  5. L-METHYLFOLATE-VIT B12-VIT B6 -METANX- [Concomitant]
  6. ALDACTONE [Concomitant]
  7. ULORIC [Suspect]
     Indication: GOUT
     Dosage: 40 MG ONCE DAILY PO
     Route: 048
     Dates: start: 20101213, end: 20101215
  8. PACERONE [Concomitant]
  9. COUMADIN [Concomitant]
  10. TORSEMIDE -DEMADEX- [Concomitant]
  11. LOPRESSOR [Concomitant]

REACTIONS (3)
  - CARDIOMYOPATHY [None]
  - VENTRICULAR TACHYCARDIA [None]
  - PALPITATIONS [None]
